FAERS Safety Report 8497481-3 (Version None)
Quarter: 2012Q3

REPORT INFORMATION
  Report Type: 
  Country: None (occurrence: None)
  Receive Date: 20120709
  Receipt Date: 20120613
  Transmission Date: 20120928
  Serious: No
  Sender: FDA-Public Use
  Company Number: US-AMGEN-USASP2012036853

PATIENT
  Age: 51 Year
  Sex: Male

DRUGS (2)
  1. ENBREL [Suspect]
     Indication: RHEUMATOID ARTHRITIS
     Dosage: 50 MG, QWK
     Dates: start: 20120301
  2. METHOTREXATE [Concomitant]
     Dosage: 1 MG, UNK

REACTIONS (6)
  - TESTICULAR PAIN [None]
  - TESTICULAR SWELLING [None]
  - INFLUENZA LIKE ILLNESS [None]
  - JOINT SWELLING [None]
  - INJECTION SITE PAIN [None]
  - ORCHITIS [None]
